FAERS Safety Report 19930197 (Version 1)
Quarter: 2021Q4

REPORT INFORMATION
  Report Type: Spontaneous
  Country: IT (occurrence: IT)
  Receive Date: 20211007
  Receipt Date: 20211007
  Transmission Date: 20220303
  Serious: Yes (Hospitalization)
  Sender: FDA-Public Use
  Company Number: IT-ABBVIE-21K-083-4106638-00

PATIENT
  Age: 7 Month
  Sex: Male
  Weight: 10 kg

DRUGS (2)
  1. VALPROATE SODIUM [Suspect]
     Active Substance: VALPROATE SODIUM
     Indication: Epilepsy
     Route: 048
     Dates: start: 20180823, end: 20180827
  2. SABRIL [Suspect]
     Active Substance: VIGABATRIN
     Indication: Epilepsy
     Route: 048
     Dates: start: 20180823, end: 20180827

REACTIONS (3)
  - Petit mal epilepsy [Unknown]
  - Eye movement disorder [Unknown]
  - Drug ineffective [Unknown]
